FAERS Safety Report 7630265-4 (Version None)
Quarter: 2011Q3

REPORT INFORMATION
  Report Type: 
  Country: None (occurrence: None)
  Receive Date: 20110722
  Receipt Date: 20110711
  Transmission Date: 20111222
  Serious: Yes (Hospitalization)
  Sender: FDA-Public Use
  Company Number: JP-SANOFI-AVENTIS-2011SA045954

PATIENT
  Age: 79 Year
  Sex: Male

DRUGS (3)
  1. FLUOROURACIL [Suspect]
     Indication: RECTAL CANCER
     Dosage: 540 MG/BODY BOLUS THEN 3200 MG/BODY/D1-2
     Dates: start: 20110324, end: 20110704
  2. LEUCOVORIN CALCIUM [Suspect]
     Indication: RECTAL CANCER
     Route: 041
     Dates: start: 20110324, end: 20110704
  3. OXALIPLATIN [Suspect]
     Indication: RECTAL CANCER
     Route: 041
     Dates: start: 20110324, end: 20110704

REACTIONS (2)
  - HYPERAMMONAEMIA [None]
  - DEPRESSED LEVEL OF CONSCIOUSNESS [None]
